FAERS Safety Report 4455376-6 (Version None)
Quarter: 2004Q3

REPORT INFORMATION
  Report Type: 
  Country: None (occurrence: None)
  Receive Date: 20040825
  Receipt Date: 20040722
  Transmission Date: 20050211
  Serious: No
  Sender: FDA-Public Use
  Company Number: 207993

PATIENT
  Age: 57 Year
  Sex: Female

DRUGS (4)
  1. RAPTIVA [Suspect]
     Indication: PSORIASIS
     Dosage: 0.9 ML,1/WEEK,SUBCUTANEOUS
     Route: 058
     Dates: start: 20040511
  2. NICODERM [Concomitant]
  3. CELEBREX [Concomitant]
  4. LORTAB [Concomitant]

REACTIONS (1)
  - DERMATITIS EXFOLIATIVE [None]
